FAERS Safety Report 13663720 (Version 1)
Quarter: 2017Q2

REPORT INFORMATION
  Report Type: Spontaneous
  Country: US (occurrence: US)
  Receive Date: 20170616
  Receipt Date: 20170616
  Transmission Date: 20170830
  Serious: Yes (Other)
  Sender: FDA-Public Use
  Company Number: None

PATIENT
  Sex: Female

DRUGS (2)
  1. ZOLMITRIPTAN. [Suspect]
     Active Substance: ZOLMITRIPTAN
     Indication: MIGRAINE
     Dosage: 5 MG, DISSOLVE 1 TAB, ORAL TAB
     Route: 048
     Dates: start: 201512, end: 201601
  2. IMITREX [Suspect]
     Active Substance: SUMATRIPTAN SUCCINATE
     Route: 048

REACTIONS (1)
  - Drug ineffective [None]
